FAERS Safety Report 20854039 (Version 1)
Quarter: 2022Q2

REPORT INFORMATION
  Report Type: Spontaneous
  Country: US (occurrence: None)
  Receive Date: 20220519
  Receipt Date: 20220519
  Transmission Date: 20220720
  Serious: Yes (Other)
  Sender: FDA-Public Use
  Company Number: None

PATIENT
  Age: 42 Year
  Sex: Female
  Weight: 49.5 kg

DRUGS (5)
  1. PAXLOVID [Suspect]
     Active Substance: NIRMATRELVIR\RITONAVIR
     Indication: COVID-19
     Dosage: FREQUENCY : TWICE A DAY;?
     Route: 048
     Dates: start: 20220511, end: 20220513
  2. HYDROXYCHLOROQUINE [Concomitant]
     Active Substance: HYDROXYCHLOROQUINE
  3. HUMIRA [Concomitant]
     Active Substance: ADALIMUMAB
  4. ALIGN [Concomitant]
     Active Substance: BIFIDOBACTERIUM LONGUM SUBSP. INFANTIS
  5. ZYRTEC [Concomitant]
     Active Substance: CETIRIZINE HYDROCHLORIDE

REACTIONS (4)
  - Nausea [None]
  - Vomiting [None]
  - Headache [None]
  - Therapy cessation [None]

NARRATIVE: CASE EVENT DATE: 20220512
